FAERS Safety Report 23529841 (Version 1)
Quarter: 2024Q1

REPORT INFORMATION
  Report Type: Spontaneous
  Country: US (occurrence: US)
  Receive Date: 20240216
  Receipt Date: 20240216
  Transmission Date: 20240410
  Serious: No
  Sender: FDA-Public Use
  Company Number: US-OTSUKA-2023_004897

PATIENT

DRUGS (3)
  1. BUSULFAN [Suspect]
     Active Substance: BUSULFAN
     Indication: Metachromatic leukodystrophy
     Dosage: UNK
     Route: 065
  2. BUSULFAN [Suspect]
     Active Substance: BUSULFAN
     Indication: Bone marrow conditioning regimen
  3. BUSULFAN [Suspect]
     Active Substance: BUSULFAN
     Indication: Stem cell transplant

REACTIONS (1)
  - Product use in unapproved indication [Unknown]
